FAERS Safety Report 9128922 (Version 1)
Quarter: 2013Q1

REPORT INFORMATION
  Report Type: Spontaneous
  Country: US (occurrence: US)
  Receive Date: 20130125
  Receipt Date: 20130125
  Transmission Date: 20140127
  Serious: No
  Sender: FDA-Public Use
  Company Number: US-009507513-1301USA011505

PATIENT
  Sex: Female
  Weight: 118.37 kg

DRUGS (1)
  1. IMPLANON [Suspect]
     Indication: CONTRACEPTION
     Dosage: 1 DF, UNK
     Route: 059
     Dates: start: 20091231

REACTIONS (4)
  - Weight increased [Unknown]
  - Implant site bruising [Unknown]
  - Medical device complication [Unknown]
  - Medical device complication [Unknown]
